FAERS Safety Report 9404819 (Version 1)
Quarter: 2013Q3

REPORT INFORMATION
  Report Type: Spontaneous
  Country: US (occurrence: None)
  Receive Date: 20130716
  Receipt Date: 20130716
  Transmission Date: 20140515
  Serious: No
  Sender: FDA-Public Use
  Company Number: None

PATIENT
  Age: 85 Year
  Sex: Male
  Weight: 77.11 kg

DRUGS (10)
  1. BENADRYL [Suspect]
     Dosage: STRENGTH:  ?QUANTITY:  3 PUFFS?FREQUENCY:  ONCE DURING PROCEDURE?HOW:  INJECTION?
     Dates: start: 20130605, end: 20130606
  2. LEVOTHROXIN [Concomitant]
  3. LISINOPRIL [Concomitant]
  4. ASPRIN [Concomitant]
  5. SIMVASTIN [Concomitant]
  6. EFFIENT [Concomitant]
  7. MULTIVITAMIN [Concomitant]
  8. OMEGA3 [Concomitant]
  9. COQ10 [Concomitant]
  10. FDTA [Concomitant]

REACTIONS (4)
  - Hypoaesthesia [None]
  - Anxiety [None]
  - Cerebrovascular accident [None]
  - Drug ineffective [None]
